FAERS Safety Report 20418488 (Version 1)
Quarter: 2022Q1

REPORT INFORMATION
  Report Type: Spontaneous
  Country: IN (occurrence: IN)
  Receive Date: 20220202
  Receipt Date: 20220202
  Transmission Date: 20220423
  Serious: Yes (Death)
  Sender: FDA-Public Use
  Company Number: IN-PFIZER INC-2020506617

PATIENT
  Age: 59 Year
  Sex: Male

DRUGS (3)
  1. SUTENT [Suspect]
     Active Substance: SUNITINIB MALATE
     Indication: Metastatic renal cell carcinoma
     Dosage: 50 MG, ONCE DAILY 4 WEEKS ON EVERY 6 WEEKS
     Route: 048
     Dates: start: 20200430
  2. SUTENT [Suspect]
     Active Substance: SUNITINIB MALATE
     Dosage: UNK
     Dates: start: 202005, end: 20211228
  3. ONDANSETRON [Concomitant]
     Active Substance: ONDANSETRON
     Dosage: 8 MG TAKE HALF 1 HOUR BEFORE SUTENT

REACTIONS (4)
  - Death [Fatal]
  - Neoplasm progression [Unknown]
  - Skin ulcer [Unknown]
  - Pain [Unknown]
